FAERS Safety Report 8480790-1 (Version None)
Quarter: 2012Q2

REPORT INFORMATION
  Report Type: 
  Country: None (occurrence: None)
  Receive Date: 20120622
  Receipt Date: 20120611
  Transmission Date: 20120825
  Serious: Yes (Other)
  Sender: FDA-Public Use
  Company Number: MPS1-1000707

PATIENT
  Age: 18 Year
  Sex: Male
  Weight: 80 kg

DRUGS (1)
  1. ALDURAZYME [Suspect]
     Indication: INFUSION
     Dosage: 0.58 MG/KG, QW, INTRAVENOUS
     Route: 042
     Dates: start: 20030603

REACTIONS (1)
  - INGUINAL HERNIA [None]
